FAERS Safety Report 18859838 (Version 1)
Quarter: 2021Q1

REPORT INFORMATION
  Report Type: Spontaneous
  Country: US (occurrence: US)
  Receive Date: 20210208
  Receipt Date: 20210208
  Transmission Date: 20210420
  Serious: Yes (Disabling)
  Sender: FDA-Public Use
  Company Number: None

PATIENT
  Age: 31 Year
  Sex: Female
  Weight: 58.5 kg

DRUGS (10)
  1. LOESTRIN NOS [Concomitant]
     Active Substance: ETHINYL ESTRADIOL\NORETHINDRONE ACETATE
  2. PANCREATIC ENZYMES [Concomitant]
     Active Substance: UNSPECIFIED INGREDIENT
  3. LIZINPRIL [Concomitant]
  4. PULMOZYME [Concomitant]
     Active Substance: DORNASE ALFA
  5. DUOXELTINE [Concomitant]
  6. LONG ACTING AND SHORT ACTING INSULIN [Concomitant]
  7. HYPERTONIC SALINE [Concomitant]
     Active Substance: SODIUM CHLORIDE
  8. TRIKAFTA [Suspect]
     Active Substance: ELEXACAFTOR\IVACAFTOR\TEZACAFTOR
     Indication: CYSTIC FIBROSIS
     Dates: start: 20191101
  9. CAYSTON [Concomitant]
     Active Substance: AZTREONAM
  10. TOBRIMYACIN [Concomitant]

REACTIONS (5)
  - Mental impairment [None]
  - Myoclonus [None]
  - Nervous system disorder [None]
  - Anxiety [None]
  - Suicidal ideation [None]

NARRATIVE: CASE EVENT DATE: 20200901
